FAERS Safety Report 7843967-1 (Version None)
Quarter: 2011Q4

REPORT INFORMATION
  Report Type: 
  Country: None (occurrence: None)
  Receive Date: 20111025
  Receipt Date: 20111017
  Transmission Date: 20120403
  Serious: Yes (Other)
  Sender: FDA-Public Use
  Company Number: PHHY2011GB91410

PATIENT
  Age: 49 Year
  Sex: Female

DRUGS (11)
  1. LORATADINE [Concomitant]
     Dosage: UNK UKN, UNK
  2. PERINDOPRIL ERBUMINE [Concomitant]
     Dosage: UNK UKN, UNK
  3. IBUPROFEN [Concomitant]
     Dosage: UNK UKN, UNK
  4. FUROSEMIDE [Concomitant]
     Dosage: UNK UKN, UNK
  5. OXYCODONE HCL [Concomitant]
     Dosage: UNK UKN, UNK
  6. AMLODIPINE [Concomitant]
     Dosage: UNK UKN, UNK
  7. PREGABALIN [Suspect]
     Dosage: UNK UKN, UNK
  8. FLUOXETINE [Suspect]
     Indication: MAJOR DEPRESSION
     Dosage: 40 MG, QD
     Route: 048
     Dates: start: 20110805
  9. DULOXETIME HYDROCHLORIDE [Concomitant]
     Dosage: UNK UKN, UNK
  10. LANSOPRAZOLE [Concomitant]
     Dosage: UNK UKN, UNK
  11. ACETAMINOPHEN [Concomitant]
     Dosage: UNK UKN, UNK

REACTIONS (4)
  - MOVEMENT DISORDER [None]
  - AKATHISIA [None]
  - PAIN IN EXTREMITY [None]
  - SUICIDAL IDEATION [None]
